FAERS Safety Report 6795972-4 (Version None)
Quarter: 2010Q2

REPORT INFORMATION
  Report Type: 
  Country: None (occurrence: None)
  Receive Date: 20100625
  Receipt Date: 20100614
  Transmission Date: 20101027
  Serious: Yes (Death)
  Sender: FDA-Public Use
  Company Number: B0662455A

PATIENT
  Age: 70 Year
  Sex: Female

DRUGS (3)
  1. CLAVAMOX [Suspect]
     Indication: DRUG USE FOR UNKNOWN INDICATION
     Route: 048
  2. ACETAMINOPHEN [Concomitant]
     Route: 065
  3. VOLTAREN [Concomitant]
     Route: 065

REACTIONS (2)
  - DEATH [None]
  - DRUG DISPENSING ERROR [None]
